FAERS Safety Report 19425890 (Version 1)
Quarter: 2021Q2

REPORT INFORMATION
  Report Type: Spontaneous
  Country: US (occurrence: US)
  Receive Date: 20210617
  Receipt Date: 20210617
  Transmission Date: 20210717
  Serious: No
  Sender: FDA-Public Use
  Company Number: US-GLAXOSMITHKLINE-US2021124838

PATIENT
  Sex: Female

DRUGS (1)
  1. FLOVENT HFA [Suspect]
     Active Substance: FLUTICASONE PROPIONATE
     Indication: ASTHMA
     Dosage: UNK
     Dates: start: 2017

REACTIONS (5)
  - Cough [Unknown]
  - Intentional product misuse [Unknown]
  - Intentional underdose [Unknown]
  - Sinusitis [Unknown]
  - Wrong dose [Not Recovered/Not Resolved]
